FAERS Safety Report 9355628 (Version 1)
Quarter: 2013Q2

REPORT INFORMATION
  Report Type: Spontaneous
  Country: US (occurrence: US)
  Receive Date: 20130619
  Receipt Date: 20130619
  Transmission Date: 20140414
  Serious: No
  Sender: FDA-Public Use
  Company Number: US-BAYER-2013-074055

PATIENT
  Sex: Female

DRUGS (1)
  1. MIRENA [Suspect]
     Indication: CONTRACEPTION
     Dosage: 20 MCG/24HR, CONT
     Route: 015
     Dates: start: 2012, end: 20130603

REACTIONS (5)
  - Pregnancy with contraceptive device [None]
  - Drug ineffective [None]
  - Vomiting in pregnancy [None]
  - Pregnancy test negative [None]
  - Menstrual disorder [None]
